FAERS Safety Report 13616103 (Version 5)
Quarter: 2018Q2

REPORT INFORMATION
  Report Type: Spontaneous
  Country: JP (occurrence: JP)
  Receive Date: 20170606
  Receipt Date: 20180430
  Transmission Date: 20180711
  Serious: Yes (Death, Life-Threatening, Hospitalization, Other)
  Sender: FDA-Public Use
  Company Number: JP-009507513-1705JPN001035J

PATIENT
  Age: 71 Year
  Sex: Male
  Weight: 48 kg

DRUGS (7)
  1. DECADRON [Concomitant]
     Active Substance: DEXAMETHASONE
     Indication: BRAIN OEDEMA
     Dosage: 3 MG, UNK
     Dates: start: 20170405
  2. DECADRON [Concomitant]
     Active Substance: DEXAMETHASONE
     Dosage: 2 MG, QD
     Route: 048
     Dates: start: 20170413
  3. VALSARTAN. [Concomitant]
     Active Substance: VALSARTAN
     Dosage: 80 MG, QD
     Route: 048
     Dates: start: 20170306
  4. E KEPPRA [Concomitant]
     Active Substance: LEVETIRACETAM
     Indication: PROPHYLAXIS
     Dosage: 500 MG, BID
     Route: 048
     Dates: start: 20170414
  5. CEFAZOLIN [Concomitant]
     Active Substance: CEFAZOLIN
     Dosage: 1.0 G, QD
     Route: 041
     Dates: start: 20170428, end: 20170428
  6. KEYTRUDA [Suspect]
     Active Substance: PEMBROLIZUMAB
     Indication: SQUAMOUS CELL CARCINOMA OF LUNG
     Dosage: 200 MG, Q3W
     Route: 041
     Dates: start: 20170419, end: 20170419
  7. LANSOPRAZOLE OD [Concomitant]
     Active Substance: LANSOPRAZOLE
     Indication: PROPHYLAXIS
     Dosage: 15 MG, QD
     Route: 048
     Dates: start: 20170414

REACTIONS (4)
  - Pneumonia aspiration [Not Recovered/Not Resolved]
  - Malignant neoplasm progression [Fatal]
  - Interstitial lung disease [Not Recovered/Not Resolved]
  - Blood beta-D-glucan increased [Unknown]

NARRATIVE: CASE EVENT DATE: 201704
